FAERS Safety Report 9429219 (Version 2)
Quarter: 2013Q3

REPORT INFORMATION
  Report Type: Spontaneous
  Country: JP (occurrence: JP)
  Receive Date: 20130730
  Receipt Date: 20130814
  Transmission Date: 20140515
  Serious: Yes (Disabling, Other)
  Sender: FDA-Public Use
  Company Number: JP-ROCHE-1244982

PATIENT
  Age: 73 Year
  Sex: Male
  Weight: 57 kg

DRUGS (14)
  1. AVASTIN [Suspect]
     Indication: LUNG ADENOCARCINOMA
     Route: 041
     Dates: start: 20121106, end: 20130621
  2. CARBOPLATIN [Suspect]
     Indication: LUNG ADENOCARCINOMA
     Route: 041
     Dates: start: 20121106, end: 20130405
  3. ALIMTA [Suspect]
     Indication: LUNG ADENOCARCINOMA
     Route: 041
     Dates: start: 20121106
  4. MOBIC [Concomitant]
     Indication: PAIN
     Route: 048
     Dates: start: 20121012
  5. PARIET [Concomitant]
     Indication: ABDOMINAL DISCOMFORT
     Route: 048
     Dates: start: 20121012
  6. PANVITAN [Concomitant]
     Indication: PROPHYLAXIS
     Route: 048
     Dates: start: 20121026
  7. METHYCOBAL [Concomitant]
     Indication: LUNG ADENOCARCINOMA
     Route: 030
     Dates: start: 20121106
  8. GRANISETRON [Concomitant]
     Indication: LUNG ADENOCARCINOMA
     Route: 042
     Dates: start: 20121106
  9. DEXART [Concomitant]
     Indication: LUNG ADENOCARCINOMA
     Route: 042
     Dates: start: 20121106
  10. PURSENNID [Concomitant]
     Indication: CONSTIPATION
     Route: 048
     Dates: start: 20121107
  11. MAGLAX [Concomitant]
     Indication: CONSTIPATION
     Route: 048
     Dates: start: 20121113
  12. GASMOTIN [Concomitant]
     Indication: ABDOMINAL DISCOMFORT
     Route: 048
     Dates: start: 20121113
  13. DIOVAN [Concomitant]
     Indication: HYPERTENSION
     Route: 048
     Dates: start: 20130308, end: 20130509
  14. AMLODIN [Concomitant]
     Indication: HYPERTENSION
     Route: 048
     Dates: start: 20130510

REACTIONS (6)
  - Corneal disorder [Recovering/Resolving]
  - Constipation [Unknown]
  - Face oedema [Unknown]
  - Neutrophil count decreased [Unknown]
  - Platelet count decreased [Unknown]
  - Hypertension [Unknown]
